FAERS Safety Report 9964675 (Version 1)
Quarter: 2014Q1

REPORT INFORMATION
  Report Type: Spontaneous
  Country: US (occurrence: US)
  Receive Date: 20140305
  Receipt Date: 20140305
  Transmission Date: 20141002
  Serious: No
  Sender: FDA-Public Use
  Company Number: US-AMGEN-USASP2013090244

PATIENT
  Age: 46 Year
  Sex: Female

DRUGS (7)
  1. ENBREL [Suspect]
     Indication: PRODUCT USED FOR UNKNOWN INDICATION
     Dosage: 50 MG, ONCE A WEEK
     Route: 058
  2. LORAZEPAM [Concomitant]
     Dosage: 1 MG, UNK
  3. BUSPAR [Concomitant]
     Dosage: 10 MG, UNK
  4. LOPID [Concomitant]
     Dosage: 600 MG, UNK
  5. OXYCODONE [Concomitant]
     Dosage: 5 MG, UNK
  6. ZOCOR [Concomitant]
     Dosage: 10 MG, UNK
  7. PREDNISONE [Concomitant]
     Dosage: 10 MG, UNK

REACTIONS (4)
  - Joint swelling [Unknown]
  - Local swelling [Unknown]
  - Pain [Unknown]
  - Arthralgia [Unknown]
